FAERS Safety Report 5954096-6 (Version None)
Quarter: 2008Q4

REPORT INFORMATION
  Report Type: 
  Country: None (occurrence: None)
  Receive Date: 20081114
  Receipt Date: 20081111
  Transmission Date: 20090506
  Serious: Yes (Death, Hospitalization, Other)
  Sender: FDA-Public Use
  Company Number: US-MERCK-0808USA02624

PATIENT
  Age: 52 Year
  Sex: Male
  Weight: 110 kg

DRUGS (29)
  1. CANCIDAS [Suspect]
     Indication: CANDIDIASIS
     Route: 042
     Dates: start: 20080813, end: 20080814
  2. CANCIDAS [Suspect]
     Route: 042
     Dates: start: 20080812, end: 20080812
  3. CANCIDAS [Suspect]
     Indication: FUNGAEMIA
     Route: 042
     Dates: start: 20080813, end: 20080814
  4. CANCIDAS [Suspect]
     Route: 042
     Dates: start: 20080812, end: 20080812
  5. THIAMINE [Concomitant]
     Route: 065
  6. ASPIRIN [Concomitant]
     Route: 065
  7. ZOCOR [Concomitant]
     Route: 048
  8. SPIRONOLACTONE [Concomitant]
     Route: 065
  9. HYDRODIURIL [Concomitant]
     Route: 048
  10. FUROSEMIDE [Concomitant]
     Route: 065
  11. CITALOPRAM [Concomitant]
     Route: 065
  12. PROPRANOLOL HYDROCHLORIDE [Concomitant]
     Route: 065
  13. HYDROXYZINE HYDROCHLORIDE [Concomitant]
     Route: 065
  14. TRAZODONE HYDROCHLORIDE [Concomitant]
     Route: 065
  15. PRILOSEC [Concomitant]
     Route: 048
  16. IRON (UNSPECIFIED) [Concomitant]
     Route: 065
  17. HYDROCODONE BITARTRATE [Concomitant]
     Route: 065
  18. LACTULOSE [Concomitant]
     Route: 065
  19. ETODOLAC [Concomitant]
     Route: 065
  20. MOMETASONE FUROATE [Concomitant]
     Route: 065
  21. VANCOMYCIN [Concomitant]
     Route: 065
  22. ALBUTEROL [Concomitant]
     Route: 065
  23. HYDROMORPHONE [Concomitant]
     Route: 065
  24. IPRATROPIUM BROMIDE [Concomitant]
     Route: 065
  25. INSULIN [Concomitant]
     Route: 065
  26. CLONAZEPAM [Concomitant]
     Route: 065
  27. PEPCID [Concomitant]
     Route: 048
  28. FOLIC ACID [Concomitant]
     Route: 065
  29. AMPICILLIN AND SULBACTAM PIVOXIL [Concomitant]
     Route: 065

REACTIONS (3)
  - DELIRIUM [None]
  - HAEMORRHAGE [None]
  - TREMOR [None]
